FAERS Safety Report 6694630-4 (Version None)
Quarter: 2010Q2

REPORT INFORMATION
  Report Type: 
  Country: None (occurrence: None)
  Receive Date: 20100423
  Receipt Date: 20100413
  Transmission Date: 20101027
  Serious: Yes (Other)
  Sender: FDA-Public Use
  Company Number: GB-ABBOTT-10P-167-0638058-01

PATIENT
  Sex: Female

DRUGS (3)
  1. HUMIRA [Suspect]
     Indication: CROHN'S DISEASE
     Dosage: BASELINE
     Route: 058
  2. HUMIRA [Suspect]
     Route: 058
  3. PENTASA [Concomitant]
     Indication: CROHN'S DISEASE

REACTIONS (1)
  - ILEOSTOMY [None]
